FAERS Safety Report 17417926 (Version 1)
Quarter: 2020Q1

REPORT INFORMATION
  Report Type: Spontaneous
  Country: US (occurrence: US)
  Receive Date: 20200214
  Receipt Date: 20200214
  Transmission Date: 20200409
  Serious: Yes (Hospitalization, Other)
  Sender: FDA-Public Use
  Company Number: US-APNAR-000055

PATIENT
  Age: 18 Year
  Sex: Female
  Weight: 72.6 kg

DRUGS (5)
  1. LAMOTRIGINE. [Suspect]
     Active Substance: LAMOTRIGINE
     Dosage: GREATER THAN 10 GRAMS ,UNKNOWN QUANTITIES
  2. TRAZODONE [Suspect]
     Active Substance: TRAZODONE HYDROCHLORIDE
     Dosage: UNKNOWN QUANTITIES
  3. BUPROPION. [Suspect]
     Active Substance: BUPROPION
     Dosage: UNKNOWN QUANTITIES
  4. BUSPIRONE [Suspect]
     Active Substance: BUSPIRONE HYDROCHLORIDE
     Dosage: UNKNOWN QUANTITIES
  5. ISOTRETINOIN. [Suspect]
     Active Substance: ISOTRETINOIN
     Dosage: UNKNOWN QUANTITIES

REACTIONS (3)
  - Intentional overdose [Unknown]
  - Electrocardiogram QRS complex prolonged [Recovered/Resolved]
  - Status epilepticus [Recovered/Resolved]
